FAERS Safety Report 5419340-2 (Version None)
Quarter: 2007Q3

REPORT INFORMATION
  Report Type: 
  Country: None (occurrence: None)
  Receive Date: 20070815
  Receipt Date: 20070730
  Transmission Date: 20080115
  Serious: Yes (Other)
  Sender: FDA-Public Use
  Company Number: 2007VX001983

PATIENT

DRUGS (1)
  1. LIBRAX [Suspect]
     Dosage: X1

REACTIONS (1)
  - OVERDOSE [None]
